FAERS Safety Report 7236226-1 (Version None)
Quarter: 2011Q1

REPORT INFORMATION
  Report Type: 
  Country: None (occurrence: None)
  Receive Date: 20110120
  Receipt Date: 20110107
  Transmission Date: 20110831
  Serious: Yes (Other)
  Sender: FDA-Public Use
  Company Number: NL-WATSON-2011-00545

PATIENT
  Age: 33 Year
  Sex: Female

DRUGS (2)
  1. OXCARBAZEPINE [Suspect]
     Indication: PARTIAL SEIZURES
     Dosage: 1800 MG, DAILY
  2. LAMOTRIGINE [Suspect]
     Indication: PARTIAL SEIZURES
     Dosage: 275 MG, DAILY

REACTIONS (4)
  - DRUG CLEARANCE INCREASED [None]
  - CONVULSION [None]
  - DRUG INTERACTION [None]
  - DRUG LEVEL DECREASED [None]
